FAERS Safety Report 20658634 (Version 1)
Quarter: 2022Q1

REPORT INFORMATION
  Report Type: Spontaneous
  Country: US (occurrence: None)
  Receive Date: 20220330
  Receipt Date: 20220330
  Transmission Date: 20220423
  Serious: Yes (Death)
  Sender: FDA-Public Use
  Company Number: None

PATIENT
  Age: 70 Year
  Sex: Female

DRUGS (17)
  1. NOURIANZ [Suspect]
     Active Substance: ISTRADEFYLLINE
     Indication: Parkinson^s disease
     Dosage: FREQUENCY : DAILY;?
     Route: 048
     Dates: start: 20201224, end: 20220327
  2. isradipine 2.5mg [Concomitant]
  3. SINGULAIR [Concomitant]
     Active Substance: MONTELUKAST SODIUM
  4. Qvar Redihaler 80mcg Inhaler [Concomitant]
  5. serevent diskus 50mcg inhaler [Concomitant]
  6. vytorin 10/40mg tablet [Concomitant]
  7. xopenex HFA oral inhaler [Concomitant]
  8. AZILECT [Concomitant]
     Active Substance: RASAGILINE MESYLATE
  9. Carbidopa/Levodopa 25-100mg tablet [Concomitant]
  10. AMANTADINE [Concomitant]
     Active Substance: AMANTADINE
  11. Prednisone 10mg tablet [Concomitant]
  12. Carbidopa/levodopa 25-100mg CR tabs [Concomitant]
  13. Aspirin 81mg tablet [Concomitant]
  14. COQ-10 capsules [Concomitant]
  15. vitamin D 1,000 IU softgels [Concomitant]
  16. Spiriva 18mcg handihaler [Concomitant]
  17. BACLOFEN [Concomitant]
     Active Substance: BACLOFEN

REACTIONS (1)
  - Death [None]

NARRATIVE: CASE EVENT DATE: 20220327
